FAERS Safety Report 25047171 (Version 6)
Quarter: 2025Q3

REPORT INFORMATION
  Report Type: Spontaneous
  Country: CA (occurrence: CA)
  Receive Date: 20250306
  Receipt Date: 20250730
  Transmission Date: 20251020
  Serious: Yes (Hospitalization)
  Sender: PFIZER
  Company Number: CA-PFIZER INC-202500049811

PATIENT
  Age: 72 Year
  Sex: Male

DRUGS (35)
  1. GENOTROPIN [Suspect]
     Active Substance: SOMATROPIN
     Indication: Growth hormone deficiency
     Dosage: 400 UG, 1X/DAY
     Route: 058
     Dates: start: 2024, end: 2024
  2. GENOTROPIN [Suspect]
     Active Substance: SOMATROPIN
     Dosage: 1 DF, 1X/DAY (DAY 1 - 0.2 MGDAY 2 - 0.4 MG)
     Route: 058
     Dates: start: 2024
  3. SOMATROPIN [Suspect]
     Active Substance: SOMATROPIN
     Indication: Growth hormone deficiency
     Dosage: 400 UG, 1X/DAY (0.4 MG)
     Route: 058
     Dates: start: 20160504, end: 201810
  4. SOMATROPIN [Suspect]
     Active Substance: SOMATROPIN
     Dosage: 300 UG, 1X/DAY
     Route: 058
     Dates: start: 201810, end: 2024
  5. ASPIRIN [Concomitant]
     Active Substance: ASPIRIN
  6. BASAGLAR [Concomitant]
     Active Substance: INSULIN GLARGINE
  7. CANDESARTAN [Concomitant]
     Active Substance: CANDESARTAN
  8. CYTOMEL [Concomitant]
     Active Substance: LIOTHYRONINE SODIUM
  9. CLOBETASOL [Concomitant]
     Active Substance: CLOBETASOL
  10. CRESTOR [Concomitant]
     Active Substance: ROSUVASTATIN CALCIUM
  11. CORTEF [Concomitant]
     Active Substance: HYDROCORTISONE
     Dosage: 50 MG, 1X/DAY
  12. CANNABIS SATIVA SUBSP. INDICA TOP [Concomitant]
     Active Substance: CANNABIS SATIVA SUBSP. INDICA TOP
  13. DULCOLAX (BISACODYL) [Concomitant]
     Active Substance: BISACODYL
  14. DIAZEPAM [Concomitant]
     Active Substance: DIAZEPAM
  15. LEVOTHYROXINE [Concomitant]
     Active Substance: LEVOTHYROXINE
  16. GLUCOBAY [Concomitant]
     Active Substance: ACARBOSE
     Dosage: 100 MG, 3X/DAY (TID)
  17. GLUMETZA [Concomitant]
     Active Substance: METFORMIN HYDROCHLORIDE
     Dosage: 500 MG, 3X/DAY (TID)
  18. GABAPENTIN [Concomitant]
     Active Substance: GABAPENTIN
  19. HYDROMORPHONE [Concomitant]
     Active Substance: HYDROMORPHONE
  20. NORVASC [Concomitant]
     Active Substance: AMLODIPINE BESYLATE
     Dosage: 5 MG, 2X/DAY
  21. LANTUS SOLOSTAR [Concomitant]
     Active Substance: INSULIN GLARGINE
  22. METFORMIN [Concomitant]
     Active Substance: METFORMIN HYDROCHLORIDE
  23. METOPROLOL [Concomitant]
     Active Substance: METOPROLOL
  24. MAGNESIUM GLYCINATE [Concomitant]
     Active Substance: MAGNESIUM GLYCINATE
     Dosage: 400 MG, 1X/DAY
  25. CETIRIZINE HYDROCHLORIDE [Concomitant]
     Active Substance: CETIRIZINE HYDROCHLORIDE
  26. ACETYLCYSTEINE [Concomitant]
     Active Substance: ACETYLCYSTEINE
  27. OLMESARTAN MEDOXOMIL [Concomitant]
     Active Substance: OLMESARTAN MEDOXOMIL
     Dosage: 20 MG, 2X/DAY
  28. PERCOCET [Concomitant]
     Active Substance: ACETAMINOPHEN\OXYCODONE HYDROCHLORIDE
  29. SYNTHROID [Concomitant]
     Active Substance: LEVOTHYROXINE SODIUM
  30. TESTOSTERONE [Concomitant]
     Active Substance: TESTOSTERONE
  31. TICAGRELOR [Concomitant]
     Active Substance: TICAGRELOR
  32. PANTOPRAZOLE MAGNESIUM [Concomitant]
     Active Substance: PANTOPRAZOLE MAGNESIUM
     Dosage: 40 MG, 2X/DAY
  33. NALOXONE HYDROCHLORIDE\OXYCODONE HYDROCHLORIDE [Concomitant]
     Active Substance: NALOXONE HYDROCHLORIDE\OXYCODONE HYDROCHLORIDE
     Dosage: 1 DF, 2X/DAY (2 TABLETS)
  34. CHOLECALCIFEROL [Concomitant]
     Active Substance: CHOLECALCIFEROL
  35. ZANTAC [Concomitant]
     Active Substance: RANITIDINE HYDROCHLORIDE

REACTIONS (1)
  - Fall [Unknown]

NARRATIVE: CASE EVENT DATE: 20250101
